FAERS Safety Report 15734248 (Version 1)
Quarter: 2018Q4

REPORT INFORMATION
  Report Type: Spontaneous
  Country: US (occurrence: US)
  Receive Date: 20181218
  Receipt Date: 20181218
  Transmission Date: 20190205
  Serious: Yes (Other)
  Sender: FDA-Public Use
  Company Number: None

PATIENT
  Age: 67 Year
  Sex: Female
  Weight: 51.66 kg

DRUGS (2)
  1. LEVOCARNITINE. [Suspect]
     Active Substance: LEVOCARNITINE
     Indication: CARNITINE DEFICIENCY
     Route: 048
     Dates: start: 20151006, end: 20151013
  2. LEVOCARNITINE. [Suspect]
     Active Substance: LEVOCARNITINE
     Indication: RHABDOMYOLYSIS
     Route: 048
     Dates: start: 20151006, end: 20151013

REACTIONS (6)
  - Product substitution issue [None]
  - Blood creatine phosphokinase abnormal [None]
  - Vomiting [None]
  - Musculoskeletal discomfort [None]
  - Nausea [None]
  - Arthralgia [None]

NARRATIVE: CASE EVENT DATE: 20151006
